FAERS Safety Report 6390290-0 (Version None)
Quarter: 2009Q4

REPORT INFORMATION
  Report Type: 
  Country: None (occurrence: None)
  Receive Date: 20091005
  Receipt Date: 20091005
  Transmission Date: 20100525
  Serious: No
  Sender: FDA-Public Use
  Company Number: None

PATIENT
  Age: 64 Year
  Sex: Male

DRUGS (1)
  1. AMIODARONE [Suspect]
     Indication: TACHYCARDIA
     Dosage: 60 MG PER HOUR IV
     Route: 042
     Dates: start: 20090905, end: 20090906

REACTIONS (1)
  - HEPATIC ENZYME INCREASED [None]
